FAERS Safety Report 9363755 (Version 1)
Quarter: 2013Q2

REPORT INFORMATION
  Report Type: Report from Study
  Country: US (occurrence: US)
  Receive Date: 20130624
  Receipt Date: 20130624
  Transmission Date: 20140414
  Serious: Yes (Hospitalization)
  Sender: FDA-Public Use
  Company Number: US-MYLANLABS-2013S1012956

PATIENT
  Age: 55 Year
  Sex: Female

DRUGS (2)
  1. GABAPENTIN [Suspect]
     Indication: DRUG ABUSE
     Route: 065
  2. LORAZEPAM [Suspect]
     Indication: DRUG ABUSE
     Route: 065

REACTIONS (6)
  - Somnolence [Unknown]
  - Coma [Unknown]
  - Tremor [Unknown]
  - Hyperreflexia [Unknown]
  - Drug abuse [Unknown]
  - Drug abuse [Unknown]
